FAERS Safety Report 25260281 (Version 1)
Quarter: 2025Q2

REPORT INFORMATION
  Report Type: Spontaneous
  Country: US (occurrence: None)
  Receive Date: 20250501
  Receipt Date: 20250501
  Transmission Date: 20250717
  Serious: Yes (Hospitalization)
  Sender: FDA-CTU
  Company Number: None

PATIENT
  Age: 77 Year
  Sex: Male

DRUGS (2)
  1. ACETYLCYSTEINE [Suspect]
     Active Substance: ACETYLCYSTEINE
     Indication: Bronchial secretion retention
     Route: 055
     Dates: start: 20250307, end: 20250310
  2. METOPROLOL [Suspect]
     Active Substance: METOPROLOL

REACTIONS (1)
  - Asthma [None]

NARRATIVE: CASE EVENT DATE: 20250310
